FAERS Safety Report 6233426-4 (Version None)
Quarter: 2009Q2

REPORT INFORMATION
  Report Type: 
  Country: None (occurrence: None)
  Receive Date: 20090616
  Receipt Date: 20090616
  Transmission Date: 20091009
  Serious: No
  Sender: FDA-Public Use
  Company Number: None

PATIENT
  Age: 61 Year
  Sex: Male
  Weight: 113.3993 kg

DRUGS (5)
  1. AMLODIPINE [Suspect]
     Indication: HYPERTENSION
     Dosage: 1 TABLET DAILY PO
     Route: 048
     Dates: start: 20090513, end: 20090613
  2. TRIAMTERENE [Concomitant]
  3. OMEPRAZOLE [Concomitant]
  4. MYLANTA [Concomitant]
  5. STEROID INJECTION [Concomitant]

REACTIONS (6)
  - ANXIETY [None]
  - FATIGUE [None]
  - JOINT SWELLING [None]
  - SLEEP DISORDER [None]
  - TINNITUS [None]
  - VISION BLURRED [None]
